FAERS Safety Report 8475947-X (Version None)
Quarter: 2012Q2

REPORT INFORMATION
  Report Type: 
  Country: None (occurrence: None)
  Receive Date: 20120628
  Receipt Date: 20120618
  Transmission Date: 20120825
  Serious: Yes (Hospitalization)
  Sender: FDA-Public Use
  Company Number: FR-BRISTOL-MYERS SQUIBB COMPANY-16698524

PATIENT
  Age: 58 Year
  Sex: Female
  Weight: 78 kg

DRUGS (3)
  1. IRBESARTAN [Suspect]
     Indication: HYPERTENSION
     Route: 048
  2. TAGAMET [Suspect]
     Indication: PREMEDICATION
     Dates: start: 20120427
  3. METFORMIN HCL [Suspect]
     Indication: TYPE 2 DIABETES MELLITUS
     Route: 048
     Dates: start: 20070101

REACTIONS (2)
  - EOSINOPHILIA [None]
  - PANCREATITIS ACUTE [None]
